FAERS Safety Report 15374842 (Version 1)
Quarter: 2018Q3

REPORT INFORMATION
  Report Type: Spontaneous
  Country: NL (occurrence: NL)
  Receive Date: 20180912
  Receipt Date: 20180912
  Transmission Date: 20181010
  Serious: Yes (Hospitalization)
  Sender: FDA-Public Use
  Company Number: NL-PFIZER INC-2018363705

PATIENT
  Age: 35 Year
  Sex: Female
  Weight: 77.5 kg

DRUGS (6)
  1. VALERIAAN [Concomitant]
     Active Substance: VALERIAN
     Dosage: UNK
  2. MELATONINE [Concomitant]
     Active Substance: MELATONIN
     Dosage: UNK
  3. VENLAFAXINE HCL [Suspect]
     Active Substance: VENLAFAXINE HYDROCHLORIDE
     Indication: PANIC ATTACK
     Dosage: 75 MG, 1X/DAY
     Route: 048
     Dates: start: 20030501
  4. VENLAFAXINE HCL [Suspect]
     Active Substance: VENLAFAXINE HYDROCHLORIDE
     Indication: ANXIETY DISORDER
  5. METOPROLOL TARTRATE. [Concomitant]
     Active Substance: METOPROLOL TARTRATE
     Dosage: UNK
     Route: 048
  6. VITAMINE D [Concomitant]
     Dosage: UNK

REACTIONS (1)
  - Pancreatitis acute [Recovering/Resolving]

NARRATIVE: CASE EVENT DATE: 20180519
